FAERS Safety Report 22181127 (Version 3)
Quarter: 2025Q3

REPORT INFORMATION
  Report Type: Report from Study
  Country: JP (occurrence: JP)
  Receive Date: 20230406
  Receipt Date: 20250731
  Transmission Date: 20251020
  Serious: Yes (Other)
  Sender: ASTELLAS
  Company Number: JP-ASTELLAS-2023JP004182

PATIENT
  Age: 73 Year
  Sex: Female

DRUGS (1)
  1. PADCEV [Suspect]
     Active Substance: ENFORTUMAB VEDOTIN-EJFV
     Indication: Product used for unknown indication
     Route: 065

REACTIONS (5)
  - Skin disorder [Unknown]
  - Liver disorder [Unknown]
  - Nervous system disorder [Unknown]
  - Taste disorder [Unknown]
  - Pyrexia [Unknown]
